FAERS Safety Report 6048792-2 (Version None)
Quarter: 2009Q1

REPORT INFORMATION
  Report Type: 
  Country: None (occurrence: None)
  Receive Date: 20090123
  Receipt Date: 20090113
  Transmission Date: 20090719
  Serious: Yes (Hospitalization, Disabling, Other)
  Sender: FDA-Public Use
  Company Number: US-MERCK-0705USA04073

PATIENT
  Age: 72 Year
  Sex: Female
  Weight: 61 kg

DRUGS (13)
  1. FOSAMAX [Suspect]
     Indication: OSTEOPOROSIS
     Route: 048
     Dates: start: 20010101, end: 20040101
  2. FOSAMAX [Suspect]
     Route: 048
     Dates: start: 20010501, end: 20010601
  3. FOSAMAX [Suspect]
     Indication: OSTEOPENIA
     Route: 048
     Dates: start: 20010101, end: 20040101
  4. FOSAMAX [Suspect]
     Route: 048
     Dates: start: 20010501, end: 20010601
  5. VIOXX [Concomitant]
     Route: 048
  6. OS-CAL [Concomitant]
     Route: 065
  7. CALCIUM (UNSPECIFIED) AND VITAMIN D (UNSPECIFIED) [Concomitant]
     Route: 065
  8. ASPIRIN [Concomitant]
     Route: 065
  9. LIPITOR [Concomitant]
     Route: 065
  10. AMITRIPTYLINE HYDROCHLORIDE [Concomitant]
     Route: 065
  11. PROPRANOLOL HYDROCHLORIDE [Concomitant]
     Route: 065
  12. SPIRONOLACTONE [Concomitant]
     Route: 065
  13. QUININE [Concomitant]
     Route: 065

REACTIONS (19)
  - ANAEMIA [None]
  - ANXIETY [None]
  - ATAXIA [None]
  - BLOOD CREATINE PHOSPHOKINASE INCREASED [None]
  - DEPRESSION [None]
  - ESSENTIAL TREMOR [None]
  - FALL [None]
  - FATIGUE [None]
  - GASTROOESOPHAGEAL REFLUX DISEASE [None]
  - GLOMUS TUMOUR [None]
  - HYPERKALAEMIA [None]
  - INCONTINENCE [None]
  - MALAISE [None]
  - NASOPHARYNGITIS [None]
  - ORAL TORUS [None]
  - OSTEOMYELITIS [None]
  - OSTEONECROSIS [None]
  - PARAGANGLION NEOPLASM [None]
  - THYROID NEOPLASM [None]
